FAERS Safety Report 8316926-2 (Version None)
Quarter: 2012Q2

REPORT INFORMATION
  Report Type: 
  Country: None (occurrence: None)
  Receive Date: 20120427
  Receipt Date: 20120420
  Transmission Date: 20120825
  Serious: Yes (Other)
  Sender: FDA-Public Use
  Company Number: DE-PFIZER INC-2011181161

PATIENT
  Sex: Female
  Weight: 2.43 kg

DRUGS (6)
  1. LYRICA [Suspect]
     Dosage: 75 MG, 1X/DAY
     Route: 064
     Dates: start: 20110808
  2. VENLAFAXINE [Concomitant]
     Dosage: 150 MG, 2X/DAY
     Route: 064
     Dates: end: 20110930
  3. FERRO-FOLGAMMA [Concomitant]
     Dosage: UNK
     Route: 064
     Dates: start: 20110908, end: 20120203
  4. LYRICA [Suspect]
     Dosage: 75 MG, 2X/DAY
     Route: 064
     Dates: start: 20091201, end: 20110807
  5. OXYTOCIN [Concomitant]
     Dosage: UNK
     Route: 064
  6. METOCLOPRAMIDE HYDROCHLORIDE [Concomitant]
     Dosage: 20 GTT, AS NEEDED, MAXIMALLY THREE TIMES DAILY
     Route: 064
     Dates: start: 20110501

REACTIONS (3)
  - MATERNAL EXPOSURE TIMING UNSPECIFIED [None]
  - FOETAL GROWTH RESTRICTION [None]
  - PLACENTAL INSUFFICIENCY [None]
